FAERS Safety Report 4892806-X (Version None)
Quarter: 2005Q4

REPORT INFORMATION
  Report Type: 
  Country: None (occurrence: None)
  Receive Date: 20051220
  Receipt Date: 20050928
  Transmission Date: 20060501
  Serious: Yes (Other)
  Sender: FDA-Public Use
  Company Number: 419594

PATIENT
  Sex: Female

DRUGS (1)
  1. BONIVA [Suspect]
     Dates: start: 20050915, end: 20050915

REACTIONS (2)
  - ABASIA [None]
  - ARTHRALGIA [None]
